FAERS Safety Report 5387370-5 (Version None)
Quarter: 2007Q3

REPORT INFORMATION
  Report Type: 
  Country: None (occurrence: None)
  Receive Date: 20070716
  Receipt Date: 20070712
  Transmission Date: 20080115
  Serious: Yes (Hospitalization, Other)
  Sender: FDA-Public Use
  Company Number: SE-NOVOPROD-264538

PATIENT
  Age: 47 Year
  Sex: Male

DRUGS (5)
  1. NOVORAPID [Suspect]
     Indication: TYPE 1 DIABETES MELLITUS
     Dates: start: 19990101
  2. NOVORAPID [Suspect]
  3. COZAAR [Concomitant]
     Dosage: 1 TAB, QD
  4. SIMVASTATIN [Concomitant]
     Dosage: 40 MG, QD
  5. TROMBYL [Concomitant]
     Dosage: 75 MG, QD
     Route: 058
     Dates: start: 20000101

REACTIONS (1)
  - DIABETIC KETOACIDOSIS [None]
